FAERS Safety Report 8378779-6 (Version None)
Quarter: 2012Q2

REPORT INFORMATION
  Report Type: 
  Country: None (occurrence: None)
  Receive Date: 20120523
  Receipt Date: 20120514
  Transmission Date: 20120825
  Serious: Yes (Hospitalization, Other)
  Sender: FDA-Public Use
  Company Number: US-ASTRAZENECA-2011SE32185

PATIENT
  Age: 50 Year
  Sex: Female
  Weight: 83.9 kg

DRUGS (29)
  1. NEXIUM [Suspect]
     Route: 048
     Dates: start: 20060201, end: 20060201
  2. NEXIUM [Suspect]
     Route: 048
     Dates: start: 20060306
  3. ZANTAC [Concomitant]
     Route: 048
     Dates: start: 20120105
  4. PROPO-N/APAP [Concomitant]
     Dosage: 100-650 TAB
     Dates: start: 20050221
  5. ACETAMINOPHEN AND HYDROCODONE BITARTRATE [Concomitant]
     Dosage: 5-500 MG
     Dates: start: 20060127
  6. VIVELLE-DOT [Concomitant]
     Dosage: 0.1 MG DIS
     Dates: start: 20060220
  7. ZANTAC [Concomitant]
     Dosage: 75 MG TO 150 MG
  8. PEPCID [Concomitant]
  9. VITAMINS SUPPLEMENTS [Concomitant]
  10. NEXIUM [Suspect]
     Route: 048
     Dates: start: 20060201, end: 20110401
  11. FIBER SUPPLEMENT [Concomitant]
  12. PREMARIN [Concomitant]
     Route: 048
     Dates: start: 20060201, end: 20090601
  13. KOMASIDINE [Concomitant]
     Indication: ULCER
     Dates: start: 20110610
  14. NEXIUM [Suspect]
     Indication: GASTROOESOPHAGEAL REFLUX DISEASE
     Route: 048
     Dates: start: 20050117
  15. ETODOLAC [Concomitant]
     Dates: start: 20060123
  16. NESCON PD [Concomitant]
     Dosage: 25-275 MG
     Dates: start: 20060123
  17. PHENAZOPYRID PLUS [Concomitant]
     Dates: start: 20060301
  18. IBUPROFEN [Concomitant]
     Dosage: AS NEEDED
     Dates: start: 20090601
  19. TYLENOL [Concomitant]
     Indication: HEADACHE
     Dosage: AS NEEDED
  20. LYRICA [Concomitant]
     Dates: start: 20110610
  21. GABAPENTIN [Concomitant]
  22. NEXIUM [Suspect]
     Route: 048
     Dates: start: 20060101, end: 20060101
  23. IBUPROFEN [Concomitant]
     Indication: HEADACHE
     Dates: start: 20060227
  24. IBUPROFEN [Concomitant]
     Route: 048
     Dates: start: 20060306
  25. SUDAFED 12 HOUR [Concomitant]
     Indication: SINUS CONGESTION
     Dosage: AS NEEDED
  26. TAGAMET [Concomitant]
  27. CEPHADYN [Concomitant]
     Dosage: 650-50
  28. SULFASALAZINE [Concomitant]
  29. CELEBREX [Concomitant]

REACTIONS (16)
  - ULCER [None]
  - DEPRESSION [None]
  - INTESTINAL HAEMORRHAGE [None]
  - COMPLEX REGIONAL PAIN SYNDROME [None]
  - ABASIA [None]
  - LOWER LIMB FRACTURE [None]
  - BONE DENSITY DECREASED [None]
  - COLITIS ISCHAEMIC [None]
  - FOOT FRACTURE [None]
  - ABDOMINAL PAIN [None]
  - HYPOKINESIA [None]
  - OSTEOPOROTIC FRACTURE [None]
  - ABDOMINAL ADHESIONS [None]
  - PERONEAL NERVE PALSY [None]
  - OSTEOPOROSIS [None]
  - QUALITY OF LIFE DECREASED [None]
